FAERS Safety Report 12116499 (Version 1)
Quarter: 2016Q1

REPORT INFORMATION
  Report Type: Other
  Country: IT (occurrence: IT)
  Receive Date: 20160225
  Receipt Date: 20160225
  Transmission Date: 20160526
  Serious: Yes (Other)
  Sender: FDA-Public Use
  Company Number: IT-MYLANLABS-2016M1007117

PATIENT

DRUGS (2)
  1. TACHIDOL [Suspect]
     Active Substance: ACETAMINOPHEN\CODEINE PHOSPHATE
     Indication: SURGERY
     Dosage: 1 DF, TOTAL
     Route: 048
     Dates: start: 20160109, end: 20160109
  2. KETOROLAC [Suspect]
     Active Substance: KETOROLAC\KETOROLAC TROMETHAMINE
     Indication: SURGERY
     Dosage: 1 DF, TOTAL
     Route: 048
     Dates: start: 20160109, end: 20160109

REACTIONS (3)
  - Face oedema [Recovering/Resolving]
  - Off label use [Unknown]
  - Eyelid oedema [Recovering/Resolving]

NARRATIVE: CASE EVENT DATE: 20160109
